FAERS Safety Report 18529445 (Version 2)
Quarter: 2020Q4

REPORT INFORMATION
  Report Type: Spontaneous
  Country: US (occurrence: US)
  Receive Date: 20201120
  Receipt Date: 20201215
  Transmission Date: 20210114
  Serious: Yes (Hospitalization)
  Sender: FDA-Public Use
  Company Number: US-PFIZER INC-2020459008

PATIENT
  Age: 94 Year
  Sex: Female

DRUGS (1)
  1. IBRANCE [Suspect]
     Active Substance: PALBOCICLIB
     Indication: MALIGNANT NIPPLE NEOPLASM FEMALE
     Dosage: 75 MG, CYCLIC [QD (ONCE A DAY) X 21 DAYS/[QD X 21D AND 7D OFF]
     Dates: start: 20180307

REACTIONS (4)
  - Upper respiratory tract infection [Unknown]
  - Cough [Unknown]
  - Decreased appetite [Unknown]
  - Product dose omission issue [Unknown]

NARRATIVE: CASE EVENT DATE: 20201208
